FAERS Safety Report 5192183-3 (Version None)
Quarter: 2006Q4

REPORT INFORMATION
  Report Type: 
  Country: None (occurrence: None)
  Receive Date: 20061220
  Receipt Date: 20061109
  Transmission Date: 20070319
  Serious: Yes (Other)
  Sender: FDA-Public Use
  Company Number: MEDI-0005043

PATIENT
  Age: 6 Month
  Sex: Male
  Weight: 3.6288 kg

DRUGS (3)
  1. SYNAGIS [Suspect]
     Indication: ANTIVIRAL PROPHYLAXIS
     Dosage: 51 MG, 1 IN 30 D, INTRAMUSCULAR
     Route: 030
     Dates: start: 20061017, end: 20061017
  2. MYLICON (SIMETICONE) [Concomitant]
  3. POLY-VI-SOL (ERGOCALCIFEROL, ASCORBIC ACID, THIAMINE, RETINOL, RIBOFLA [Concomitant]

REACTIONS (4)
  - DEPRESSED LEVEL OF CONSCIOUSNESS [None]
  - HYDROCEPHALUS [None]
  - HYPERSOMNIA [None]
  - INFECTION [None]
